FAERS Safety Report 7545400-6 (Version None)
Quarter: 2011Q2

REPORT INFORMATION
  Report Type: 
  Country: None (occurrence: None)
  Receive Date: 20110613
  Receipt Date: 20110613
  Transmission Date: 20111010
  Serious: Yes (Hospitalization)
  Sender: FDA-Public Use
  Company Number: None

PATIENT
  Age: 63 Year
  Sex: Male

DRUGS (10)
  1. COUMADIN [Concomitant]
  2. AMIODARONE HCL [Concomitant]
  3. LACTULOSE [Concomitant]
  4. REVLIMID [Suspect]
     Indication: MULTIPLE MYELOMA
     Dosage: REVLIMID 10MG DAILY ORAL
     Route: 048
     Dates: start: 20090520, end: 20091201
  5. HYTRIN [Concomitant]
  6. ACYCLOVIR [Concomitant]
  7. BACTRIM [Concomitant]
  8. OMEPRAZOLE [Concomitant]
  9. DEXAMETHASONE [Concomitant]
  10. PROSCAR [Concomitant]

REACTIONS (7)
  - MUSCLE SPASMS [None]
  - MUSCLE TIGHTNESS [None]
  - MULTIPLE MYELOMA [None]
  - DEHYDRATION [None]
  - RENAL FAILURE ACUTE [None]
  - DISEASE RECURRENCE [None]
  - PANCYTOPENIA [None]
